FAERS Safety Report 11631853 (Version 1)
Quarter: 2015Q4

REPORT INFORMATION
  Report Type: Spontaneous
  Country: GB (occurrence: None)
  Receive Date: 20151013
  Receipt Date: 20151013
  Transmission Date: 20160304
  Serious: Yes (Hospitalization)
  Sender: FDA-Public Use
  Company Number: GB-2015-4167

PATIENT
  Age: 17 Year
  Sex: Female
  Weight: 57.15 kg

DRUGS (1)
  1. PROPRANOLOL INN (PROPRANOLOL HYDROCHLORIDE) UNKNOWN [Suspect]
     Active Substance: PROPRANOLOL HYDROCHLORIDE
     Indication: PALPITATIONS
     Route: 048
     Dates: start: 20150913

REACTIONS (9)
  - Depression [None]
  - Dizziness [None]
  - Insomnia [None]
  - Oropharyngeal pain [None]
  - Off label use [None]
  - Arthralgia [None]
  - Nausea [None]
  - Peripheral coldness [None]
  - Increased tendency to bruise [None]

NARRATIVE: CASE EVENT DATE: 20150913
